FAERS Safety Report 6111005-7 (Version None)
Quarter: 2009Q1

REPORT INFORMATION
  Report Type: 
  Country: None (occurrence: None)
  Receive Date: 20090311
  Receipt Date: 20080312
  Transmission Date: 20090719
  Serious: No
  Sender: FDA-Public Use
  Company Number: US-KINGPHARMUSA00001-K200800311

PATIENT
  Sex: Male

DRUGS (2)
  1. ALTACE [Suspect]
     Indication: PROPHYLAXIS
     Route: 048
     Dates: start: 20030101
  2. DIURETICS [Concomitant]

REACTIONS (2)
  - BLOOD CREATININE INCREASED [None]
  - BLOOD POTASSIUM INCREASED [None]
